FAERS Safety Report 9995273 (Version 1)
Quarter: 2014Q1

REPORT INFORMATION
  Report Type: Spontaneous
  Country: US (occurrence: None)
  Receive Date: 20140307
  Receipt Date: 20140307
  Transmission Date: 20141002
  Serious: Yes (Other)
  Sender: FDA-Public Use
  Company Number: None

PATIENT
  Age: 67 Year
  Sex: Male
  Weight: 97.52 kg

DRUGS (7)
  1. XIAFLEX [Suspect]
  2. ALTENOLOL [Concomitant]
  3. PROTONIX [Concomitant]
  4. VITAMINS B, C, D [Concomitant]
  5. SELENIUM [Concomitant]
  6. MAGNESIUM [Concomitant]
  7. SAW PALMETTO [Concomitant]

REACTIONS (4)
  - Musculoskeletal disorder [None]
  - Local swelling [None]
  - Pain [None]
  - Arthritis [None]
